FAERS Safety Report 11718739 (Version 2)
Quarter: 2015Q4

REPORT INFORMATION
  Report Type: Spontaneous
  Country: JP (occurrence: JP)
  Receive Date: 20151109
  Receipt Date: 20151207
  Transmission Date: 20160304
  Serious: Yes (Life-Threatening, Hospitalization)
  Sender: FDA-Public Use
  Company Number: JP-BAYER-2015-457069

PATIENT
  Age: 74 Year
  Sex: Male

DRUGS (2)
  1. ACETYLSALICYLIC ACID({=100 MG) [Suspect]
     Active Substance: ASPIRIN
     Indication: TAKAYASU^S ARTERITIS
     Dosage: 100 MG, QD
     Route: 048
  2. CLOPIDOGREL SULFATE [Interacting]
     Active Substance: CLOPIDOGREL BISULFATE
     Route: 048

REACTIONS (12)
  - Ruptured cerebral aneurysm [None]
  - Carotid artery occlusion [None]
  - Hydrocephalus [None]
  - Subarachnoid haemorrhage [Recovering/Resolving]
  - Labelled drug-drug interaction medication error [None]
  - Altered state of consciousness [Recovering/Resolving]
  - Collateral circulation [None]
  - Headache [Recovering/Resolving]
  - Cerebral vasoconstriction [None]
  - Subclavian artery occlusion [None]
  - Peripheral arterial occlusive disease [None]
  - Cerebral salt-wasting syndrome [Recovering/Resolving]

NARRATIVE: CASE EVENT DATE: 2015
